FAERS Safety Report 5253987-1 (Version None)
Quarter: 2007Q1

REPORT INFORMATION
  Report Type: 
  Country: None (occurrence: None)
  Receive Date: 20070302
  Receipt Date: 20070220
  Transmission Date: 20070707
  Serious: Yes (Disabling)
  Sender: FDA-Public Use
  Company Number: PHNR2007AU00662

PATIENT
  Age: 45 Year
  Sex: Female

DRUGS (3)
  1. VALERIAN [Concomitant]
     Dosage: UNK, QD
     Route: 048
  2. ZOLOFT [Concomitant]
     Dosage: 25 MG, QD
     Route: 048
  3. TEGRETOL [Suspect]
     Dosage: 1200 MG, QD
     Route: 048
     Dates: end: 20060304

REACTIONS (1)
  - TENDONITIS [None]
